FAERS Safety Report 17368988 (Version 2)
Quarter: 2020Q2

REPORT INFORMATION
  Report Type: Spontaneous
  Country: ES (occurrence: ES)
  Receive Date: 20200204
  Receipt Date: 20200403
  Transmission Date: 20200713
  Serious: Yes (Hospitalization, Other)
  Sender: FDA-Public Use
  Company Number: ES-PFM-2020-01427

PATIENT

DRUGS (15)
  1. TAXOTERE [Suspect]
     Active Substance: DOCETAXEL
     Indication: BREAST CANCER
     Dosage: UNK
     Route: 065
     Dates: start: 200909, end: 201002
  2. VINORELBINE TARTRATE. [Suspect]
     Active Substance: VINORELBINE TARTRATE
     Dosage: UNK
     Route: 065
     Dates: start: 20080410, end: 200907
  3. HERCEPTIN [Suspect]
     Active Substance: TRASTUZUMAB
     Dosage: UNK
     Route: 065
     Dates: start: 20080410, end: 200907
  4. LAPATINIB [Suspect]
     Active Substance: LAPATINIB
     Indication: BREAST CANCER
     Dosage: 1000 MG, DAILY
     Route: 065
     Dates: start: 201002, end: 201011
  5. HERCEPTIN [Suspect]
     Active Substance: TRASTUZUMAB
     Dosage: UNK
     Route: 065
     Dates: start: 200909, end: 201002
  6. HERCEPTIN [Suspect]
     Active Substance: TRASTUZUMAB
     Dosage: UNK
     Route: 042
     Dates: start: 200907, end: 200909
  7. CAPECITABINE. [Suspect]
     Active Substance: CAPECITABINE
     Indication: BREAST CANCER
     Dosage: 1000 MG/M2, UNK
     Route: 048
     Dates: start: 201002, end: 201011
  8. HERCEPTIN [Suspect]
     Active Substance: TRASTUZUMAB
     Dosage: UNK
     Route: 065
     Dates: start: 201104, end: 201108
  9. HERCEPTIN [Suspect]
     Active Substance: TRASTUZUMAB
     Dosage: UNK
     Route: 065
     Dates: start: 201108, end: 201112
  10. HERCEPTIN [Suspect]
     Active Substance: TRASTUZUMAB
     Indication: BREAST CANCER
     Dosage: UNK
     Route: 042
     Dates: start: 201012, end: 201104
  11. LAPATINIB [Suspect]
     Active Substance: LAPATINIB
     Dosage: UNK
     Route: 065
     Dates: start: 201012, end: 201104
  12. VINORELBINE TARTRATE. [Suspect]
     Active Substance: VINORELBINE TARTRATE
     Indication: BREAST CANCER
     Dosage: UNK
     Route: 065
     Dates: start: 201011, end: 201012
  13. HERCEPTIN [Suspect]
     Active Substance: TRASTUZUMAB
     Dosage: UNK
     Route: 042
     Dates: start: 201112, end: 201202
  14. LAPATINIB [Suspect]
     Active Substance: LAPATINIB
     Dosage: UNK
     Route: 065
     Dates: start: 201011, end: 201012
  15. CAELYX [Suspect]
     Active Substance: DOXORUBICIN HYDROCHLORIDE
     Indication: BREAST CANCER
     Dosage: 20 MG/M2, UNK
     Route: 065
     Dates: start: 200907, end: 200909

REACTIONS (3)
  - Mucosal inflammation [Recovered/Resolved]
  - Pulmonary embolism [Recovered/Resolved]
  - Palmar-plantar erythrodysaesthesia syndrome [Recovered/Resolved]

NARRATIVE: CASE EVENT DATE: 2009
